FAERS Safety Report 24142930 (Version 2)
Quarter: 2024Q3

REPORT INFORMATION
  Report Type: Spontaneous
  Country: JP (occurrence: JP)
  Receive Date: 20240726
  Receipt Date: 20240822
  Transmission Date: 20241016
  Serious: No
  Sender: MYLAN
  Company Number: JP-MYLANLABS-2024M1064975

PATIENT
  Age: 76 Year
  Sex: Female

DRUGS (1)
  1. EPIPEN [Suspect]
     Active Substance: EPINEPHRINE
     Indication: Product used for unknown indication
     Dosage: UNK
     Route: 030

REACTIONS (2)
  - Needle issue [Recovered/Resolved]
  - Product quality issue [Recovered/Resolved]
